FAERS Safety Report 4454069-9 (Version None)
Quarter: 2004Q3

REPORT INFORMATION
  Report Type: 
  Country: None (occurrence: None)
  Receive Date: 20040920
  Receipt Date: 20040623
  Transmission Date: 20050211
  Serious: Yes (Death, Hospitalization, Other)
  Sender: FDA-Public Use
  Company Number: JP-BRISTOL-MYERS SQUIBB COMPANY-12629317

PATIENT
  Age: 72 Year
  Sex: Male

DRUGS (7)
  1. GATIFLO TABS 100 MG [Suspect]
     Indication: INFECTION
     Route: 048
     Dates: start: 20040531, end: 20040603
  2. FLUCAM [Concomitant]
  3. RHYTHMY [Concomitant]
     Route: 048
     Dates: start: 20040520, end: 20040602
  4. LAXOBERON [Concomitant]
     Route: 048
     Dates: start: 20040501, end: 20040602
  5. ENSURE [Concomitant]
     Dates: end: 20040603
  6. FULCALIQ 3 [Concomitant]
     Route: 042
     Dates: start: 20040601, end: 20040603
  7. MINERALIN [Concomitant]
     Route: 042
     Dates: start: 20040601, end: 20040603

REACTIONS (4)
  - DEPRESSED LEVEL OF CONSCIOUSNESS [None]
  - HEPATIC FAILURE [None]
  - HYPERGLYCAEMIA [None]
  - RENAL FAILURE [None]
